FAERS Safety Report 8130404-5 (Version None)
Quarter: 2012Q1

REPORT INFORMATION
  Report Type: 
  Country: None (occurrence: None)
  Receive Date: 20120210
  Receipt Date: 20120209
  Transmission Date: 20120608
  Serious: Yes (Hospitalization, Other)
  Sender: FDA-Public Use
  Company Number: PHFR2011IE006888

PATIENT
  Sex: Male

DRUGS (5)
  1. DIAZEPAM [Concomitant]
     Indication: AGITATION
     Dosage: 15 MG, DAILY
     Route: 048
     Dates: start: 20111122
  2. CLOZARIL [Suspect]
     Indication: SCHIZOPHRENIA
     Route: 048
     Dates: start: 20080225
  3. CLOZARIL [Suspect]
     Dosage: 250 MG, DAILY
     Route: 048
     Dates: start: 20111122
  4. H2IDA [Concomitant]
     Dosage: 2.5 MG, DAILY
     Route: 048
     Dates: start: 20111124, end: 20111130
  5. DIAZEPAM [Concomitant]
     Dosage: 2.5 MG, UNK
     Route: 048
     Dates: end: 20111208

REACTIONS (4)
  - MENTAL IMPAIRMENT [None]
  - PSYCHOTIC DISORDER [None]
  - WHITE BLOOD CELL COUNT DECREASED [None]
  - SCHIZOPHRENIA [None]
